FAERS Safety Report 25452242 (Version 2)
Quarter: 2025Q2

REPORT INFORMATION
  Report Type: Spontaneous
  Country: IT (occurrence: IT)
  Receive Date: 20250618
  Receipt Date: 20250627
  Transmission Date: 20250716
  Serious: Yes (Hospitalization, Other)
  Sender: VIIV
  Company Number: None

PATIENT
  Sex: Male

DRUGS (3)
  1. CABOTEGRAVIR [Interacting]
     Active Substance: CABOTEGRAVIR
     Indication: Prophylaxis against HIV infection
     Dosage: 600 MG, MO (600 MG TIME 0, AFTER 1 MONTH, THEREAFTER EVERY 2 MONTHS)
  2. CABOTEGRAVIR [Interacting]
     Active Substance: CABOTEGRAVIR
  3. CABOTEGRAVIR [Interacting]
     Active Substance: CABOTEGRAVIR

REACTIONS (10)
  - Deep vein thrombosis [Recovered/Resolved]
  - Pulmonary embolism [Recovered/Resolved]
  - Injection site pain [Recovered/Resolved]
  - Intermittent claudication [Recovered/Resolved]
  - Pain in extremity [Recovered/Resolved]
  - Limb discomfort [Recovered/Resolved]
  - Oedema [Recovered/Resolved]
  - Dyspnoea [Recovered/Resolved]
  - Activities of daily living decreased [Unknown]
  - Drug interaction [Unknown]

NARRATIVE: CASE EVENT DATE: 20250409
